FAERS Safety Report 6275926-7 (Version None)
Quarter: 2009Q3

REPORT INFORMATION
  Report Type: 
  Country: None (occurrence: None)
  Receive Date: 20090720
  Receipt Date: 20090712
  Transmission Date: 20100115
  Serious: Yes (Hospitalization)
  Sender: FDA-Public Use
  Company Number: CHPA2009US15183

PATIENT
  Age: 55 Year
  Sex: Male

DRUGS (1)
  1. NICOTINE [Suspect]
     Indication: SMOKING CESSATION THERAPY
     Dosage: 7 MG, QD, TRANSDERMAL; 14 MG, QD, TRANSDEMRAL; 21 MG, QD, TRANSDERMAL
     Route: 062

REACTIONS (3)
  - FALL [None]
  - FEELING ABNORMAL [None]
  - MUSCLE SPASMS [None]
